FAERS Safety Report 9036988 (Version 1)
Quarter: 2013Q1

REPORT INFORMATION
  Report Type: Spontaneous
  Country: US (occurrence: None)
  Receive Date: 20130118
  Receipt Date: 20130118
  Transmission Date: 20140127
  Serious: Yes (Other)
  Sender: FDA-Public Use
  Company Number: None

PATIENT
  Age: 49 Year
  Sex: Female
  Weight: 81.65 kg

DRUGS (2)
  1. LYRICA [Suspect]
     Indication: NEURALGIA
     Dosage: 3 DAILY PO
     Route: 048
     Dates: start: 20121105, end: 20130102
  2. LYRICA [Suspect]
     Indication: PROCEDURAL PAIN
     Dosage: 3 DAILY PO
     Route: 048
     Dates: start: 20121105, end: 20130102

REACTIONS (10)
  - Pain in extremity [None]
  - Pain in extremity [None]
  - Musculoskeletal pain [None]
  - Asthenia [None]
  - Pain [None]
  - Skin burning sensation [None]
  - Pruritus [None]
  - Arthralgia [None]
  - Dyspnoea [None]
  - Sleep disorder [None]
